FAERS Safety Report 16119067 (Version 2)
Quarter: 2019Q1

REPORT INFORMATION
  Report Type: Spontaneous
  Country: FR (occurrence: FR)
  Receive Date: 20190326
  Receipt Date: 20190328
  Transmission Date: 20190418
  Serious: Yes (Hospitalization)
  Sender: FDA-Public Use
  Company Number: FR-PFIZER INC-2019124101

PATIENT
  Age: 79 Year
  Sex: Female

DRUGS (9)
  1. BROMAZEPAM BIOGARAN [Suspect]
     Active Substance: BROMAZEPAM
     Indication: DEPRESSION
     Dosage: 0.5 DF, 1X/DAY
     Route: 048
     Dates: end: 20121122
  2. AMOXICILLIN/CLAVULANIC ACID MYLAN [Suspect]
     Active Substance: AMOXICILLIN\CLAVULANIC ACID
     Indication: LUNG DISORDER
     Dosage: 3 G, 1X/DAY
     Route: 048
     Dates: start: 20121110, end: 20121117
  3. ELUDRIL [CHLORHEXIDINE GLUCONATE] [Suspect]
     Active Substance: CHLORHEXIDINE GLUCONATE
     Indication: ORAL FUNGAL INFECTION
     Dosage: 3 DF, 1X/DAY
     Route: 002
     Dates: start: 20121113, end: 20121115
  4. GAVISCON [Concomitant]
     Active Substance: ALUMINUM HYDROXIDE\MAGNESIUM CARBONATE
     Dosage: UNK
     Route: 065
  5. BISOCE [Suspect]
     Active Substance: BISOPROLOL
     Indication: HYPERTENSION
     Dosage: 1 DF, 1X/DAY
     Route: 048
     Dates: end: 20121121
  6. IXEL [Concomitant]
     Active Substance: MILNACIPRAN HYDROCHLORIDE
     Dosage: UNK
     Route: 065
  7. TRIFLUCAN [Suspect]
     Active Substance: FLUCONAZOLE
     Indication: ORAL FUNGAL INFECTION
     Dosage: 2 DF, 1X/DAY
     Route: 048
     Dates: start: 20121113, end: 20121121
  8. PARIET [Suspect]
     Active Substance: RABEPRAZOLE SODIUM
     Dosage: 1 DF, 1X/DAY
     Route: 048
     Dates: end: 20121114
  9. FUNGIZONE [Suspect]
     Active Substance: AMPHOTERICIN B
     Indication: ORAL FUNGAL INFECTION
     Dosage: 2 DF, 1X/DAY
     Route: 048
     Dates: start: 20121111, end: 20121115

REACTIONS (3)
  - Urinary retention [Recovered/Resolved]
  - Hallucination [Recovered/Resolved]
  - Confusional state [Recovered/Resolved]

NARRATIVE: CASE EVENT DATE: 20121114
